FAERS Safety Report 7278037-7 (Version None)
Quarter: 2011Q1

REPORT INFORMATION
  Report Type: 
  Country: None (occurrence: None)
  Receive Date: 20110207
  Receipt Date: 20110203
  Transmission Date: 20110831
  Serious: Yes (Death)
  Sender: FDA-Public Use
  Company Number: FR-GENZYME-FLUD-1000692

PATIENT

DRUGS (7)
  1. HEPARIN [Concomitant]
     Indication: PROPHYLAXIS
     Dosage: 100 IU/KG, UNK
     Route: 042
  2. BUSULFAN [Suspect]
     Indication: STEM CELL TRANSPLANT
     Dosage: 1 MG/KG, ONCE Q6H ON DAYS -4 AND -3
     Route: 048
  3. FLUDARA [Suspect]
     Indication: STEM CELL TRANSPLANT
     Dosage: 30 MG/M2, QD FROM DAY -6 OR -5 TO DAY -1
     Route: 065
  4. CYCLOSPORINE [Concomitant]
     Indication: IMMUNOSUPPRESSION
     Dosage: 3 MG/KG, QD FROM DAY -2
     Route: 042
  5. TRIMETHOPRIM + SULFAMETHOXAZOLE [Concomitant]
     Indication: ANTIFUNGAL PROPHYLAXIS
     Dosage: UNK, 2X/W
     Route: 065
  6. CYCLOSPORINE [Concomitant]
     Indication: PROPHYLAXIS
     Dosage: 3 MG/KG, QD FROM DAY -2
     Route: 048
  7. THYMOGLOBULIN [Suspect]
     Indication: STEM CELL TRANSPLANT
     Dosage: 2.5 MG/KG, QD ON DAY -3
     Route: 065

REACTIONS (7)
  - ACUTE GRAFT VERSUS HOST DISEASE [None]
  - TRANSPLANT REJECTION [None]
  - CEREBRAL HAEMORRHAGE [None]
  - CHRONIC GRAFT VERSUS HOST DISEASE [None]
  - INFECTION [None]
  - UNEVALUABLE EVENT [None]
  - HAEMATOLOGICAL MALIGNANCY [None]
